FAERS Safety Report 7770663-1 (Version None)
Quarter: 2011Q3

REPORT INFORMATION
  Report Type: 
  Country: None (occurrence: None)
  Receive Date: 20110922
  Receipt Date: 20110916
  Transmission Date: 20111222
  Serious: Yes (Disabling)
  Sender: FDA-Public Use
  Company Number: JP-B.I. PHARMACEUTICALS,INC./RIDGEFIELD-2011-BP-22459NB

PATIENT
  Age: 81 Year
  Sex: Female

DRUGS (5)
  1. PRADAXA [Suspect]
     Indication: ATRIAL FIBRILLATION
     Dosage: 220 MG
     Route: 048
     Dates: start: 20110618, end: 20110830
  2. ASPIRIN [Suspect]
     Dosage: 100 MG
     Route: 048
     Dates: end: 20110830
  3. DILTIAZEM HCL [Concomitant]
     Indication: ANGINA PECTORIS
     Dosage: 100 MG
     Route: 048
  4. OMEPRAZOLE [Concomitant]
     Indication: ABDOMINAL PAIN UPPER
     Dosage: 20 MG
     Route: 048
  5. PIROLACTON [Concomitant]
     Indication: HYPERTENSION
     Dosage: 25 MG
     Route: 048

REACTIONS (2)
  - SPINAL CORD HAEMORRHAGE [None]
  - DIPLEGIA [None]
